FAERS Safety Report 12446336 (Version 1)
Quarter: 2016Q2

REPORT INFORMATION
  Report Type: Spontaneous
  Country: US (occurrence: US)
  Receive Date: 20160608
  Receipt Date: 20160608
  Transmission Date: 20160815
  Serious: Yes (Hospitalization, Other)
  Sender: FDA-Public Use
  Company Number: US-ROCHE-1768290

PATIENT
  Age: 72 Year
  Sex: Female
  Weight: 82.1 kg

DRUGS (2)
  1. LABETALOL [Concomitant]
     Active Substance: LABETALOL\LABETALOL HYDROCHLORIDE
     Indication: HYPERTENSION
     Dosage: 10 MG , 20 MG
     Route: 042
     Dates: start: 20160527, end: 20160527
  2. ACTIVASE [Suspect]
     Active Substance: ALTEPLASE
     Indication: CEREBROVASCULAR ACCIDENT
     Route: 042
     Dates: start: 20160524, end: 20160527

REACTIONS (5)
  - Haemorrhage intracranial [Not Recovered/Not Resolved]
  - Dysarthria [Unknown]
  - Facial paresis [Unknown]
  - Headache [Unknown]
  - Aphasia [Unknown]

NARRATIVE: CASE EVENT DATE: 20160527
